FAERS Safety Report 8052601-X (Version None)
Quarter: 2012Q1

REPORT INFORMATION
  Report Type: 
  Country: None (occurrence: None)
  Receive Date: 20120117
  Receipt Date: 20120117
  Transmission Date: 20120608
  Serious: Yes (Hospitalization)
  Sender: FDA-Public Use
  Company Number: None

PATIENT
  Age: 54 Year
  Sex: Male
  Weight: 92.6 kg

DRUGS (1)
  1. NAPROXEN [Suspect]
     Dosage: 500 MG BID PO
     Route: 048
     Dates: start: 20110309, end: 20110529

REACTIONS (2)
  - GASTRIC HAEMORRHAGE [None]
  - UPPER GASTROINTESTINAL HAEMORRHAGE [None]
